FAERS Safety Report 8477378-5 (Version None)
Quarter: 2012Q2

REPORT INFORMATION
  Report Type: 
  Country: None (occurrence: None)
  Receive Date: 20120614
  Receipt Date: 20120601
  Transmission Date: 20120825
  Serious: Yes (Other)
  Sender: FDA-Public Use
  Company Number: 2012SA040242

PATIENT
  Age: 34 Year
  Sex: Male

DRUGS (1)
  1. MENTHOL / UNKNOWN / UNKNOWN [Suspect]
     Indication: MYALGIA

REACTIONS (4)
  - SKIN EXFOLIATION [None]
  - ERYTHEMA [None]
  - SKIN DISCOLOURATION [None]
  - CHEMICAL INJURY [None]
